FAERS Safety Report 15029314 (Version 3)
Quarter: 2020Q1

REPORT INFORMATION
  Report Type: Report from Study
  Country: FR (occurrence: FR)
  Receive Date: 20180619
  Receipt Date: 20200303
  Transmission Date: 20200409
  Serious: Yes (Other)
  Sender: FDA-Public Use
  Company Number: FR-MYLANLABS-2018M1040136

PATIENT
  Age: 72 Year
  Sex: Male
  Weight: 77 kg

DRUGS (34)
  1. METHOTREXATE. [Suspect]
     Active Substance: METHOTREXATE
     Dosage: 7.5 MILLIGRAM, QW (7.5MG, WEEKLY)
     Route: 048
     Dates: start: 20151022, end: 20160512
  2. SORIATANE [Suspect]
     Active Substance: ACITRETIN
     Indication: PRODUCT USED FOR UNKNOWN INDICATION
     Dosage: 25 MILLIGRAM, QD (25 MG, DAILY)
     Route: 048
     Dates: start: 2004, end: 200512
  3. METHOTREXATE. [Suspect]
     Active Substance: METHOTREXATE
     Indication: PSORIASIS
     Dosage: 10 MILLIGRAM, QW (10 MG, WEEKLY)
     Route: 048
     Dates: end: 20070123
  4. METHOTREXATE. [Suspect]
     Active Substance: METHOTREXATE
     Dosage: 10 MILLIGRAM, QW (10 MG, WEEKLY)
     Route: 048
     Dates: end: 201211
  5. METHOTREXATE. [Suspect]
     Active Substance: METHOTREXATE
     Dosage: 5 MILLIGRAM, QW (5 MG, WEEKLY)
     Route: 048
     Dates: start: 20130627, end: 201310
  6. METHOTREXATE. [Suspect]
     Active Substance: METHOTREXATE
     Dosage: 10 MILLIGRAM, QW (10 MG, WEEKLY)
     Route: 048
     Dates: start: 20060530, end: 20060912
  7. SORIATANE [Suspect]
     Active Substance: ACITRETIN
     Dosage: 20 MILLIGRAM, QD (20 MG, DAILY)
     Route: 048
     Dates: start: 200512, end: 20060213
  8. FOLIC ACID. [Concomitant]
     Active Substance: FOLIC ACID
     Dosage: 10 MILLIGRAM, QW(10 MG, WEEKLY)
     Route: 048
     Dates: start: 20180301
  9. METHOTREXATE. [Suspect]
     Active Substance: METHOTREXATE
     Dosage: 7.5 MILLIGRAM, QW (7.5MG, WEEKLY)
     Route: 048
     Dates: start: 201311, end: 2015
  10. METHOTREXATE. [Suspect]
     Active Substance: METHOTREXATE
     Dosage: 10 MILLIGRAM, QW (10 MG, WEEKLY)
     Route: 048
     Dates: start: 200908, end: 20101014
  11. METHOTREXATE. [Suspect]
     Active Substance: METHOTREXATE
     Dosage: 7.5 MILLIGRAM, QW (7.5MG, WEEKLY)
     Route: 048
     Dates: start: 20130110, end: 20130627
  12. METHOTREXATE. [Suspect]
     Active Substance: METHOTREXATE
     Dosage: 12.5 MILLIGRAM, QW (12.5 MG, WEEKLY)
     Route: 048
     Dates: start: 20070123, end: 20070522
  13. METHOTREXATE. [Suspect]
     Active Substance: METHOTREXATE
     Dosage: 10 MILLIGRAM, QW (10 MG, WEEKLY)
     Route: 048
     Dates: start: 20070522, end: 20070822
  14. METHOTREXATE. [Suspect]
     Active Substance: METHOTREXATE
     Dosage: 5 MILLIGRAM, QW (5 MG, WEEKLY)
     Route: 048
     Dates: start: 20071106, end: 200803
  15. ENBREL [Suspect]
     Active Substance: ETANERCEPT
     Indication: PSORIASIS
     Dosage: 50 MILLIGRAM, QW
     Route: 058
     Dates: start: 20170720, end: 20180213
  16. PLAVIX [Concomitant]
     Active Substance: CLOPIDOGREL BISULFATE
     Dosage: UNK
  17. METHOTREXATE. [Suspect]
     Active Substance: METHOTREXATE
     Dosage: 5 MILLIGRAM, QW (5 MG, WEEKLY)
     Route: 048
     Dates: start: 2015, end: 20151022
  18. METHOTREXATE. [Suspect]
     Active Substance: METHOTREXATE
     Dosage: 2.5 MILLIGRAM, QW(2.5 MG, WEEKLY)
     Route: 048
     Dates: start: 200803, end: 20090312
  19. ASPIRIN                            /00002701/ [Concomitant]
     Active Substance: ASPIRIN
     Dosage: UNK
  20. OMACOR [Concomitant]
     Active Substance: OMEGA-3-ACID ETHYL ESTERS
     Dosage: UNK
  21. AMLODIPIN                          /00972401/ [Concomitant]
     Active Substance: AMLODIPINE BESYLATE
     Dosage: UNK
     Dates: start: 2017
  22. PRAVASTATIN SODIUM. [Concomitant]
     Active Substance: PRAVASTATIN SODIUM
     Dosage: UNK
  23. METHOTREXATE. [Suspect]
     Active Substance: METHOTREXATE
     Dosage: 5 MILLIGRAM, QW (5 MG, WEEKLY)
     Route: 048
     Dates: start: 20090319, end: 200908
  24. METHOTREXATE. [Suspect]
     Active Substance: METHOTREXATE
     Dosage: 7.5 MILLIGRAM, QW (7.5MG, WEEKLY)
     Route: 048
     Dates: start: 20101014
  25. METHOTREXATE. [Suspect]
     Active Substance: METHOTREXATE
     Dosage: 7.5 MILLIGRAM, QW (7.5MG, WEEKLY)
     Route: 048
     Dates: start: 20070822, end: 20071106
  26. METHOTREXATE. [Suspect]
     Active Substance: METHOTREXATE
     Dosage: 12.5 MILLIGRAM, QW (12.5 MG, WEEKLY)
     Route: 048
  27. METHOTREXATE. [Suspect]
     Active Substance: METHOTREXATE
     Dosage: 5 MILLIGRAM, QD (5 MG, DAILY)
     Route: 048
     Dates: start: 201211, end: 20130110
  28. KARDEGIC [Concomitant]
     Active Substance: ASPIRIN DL-LYSINE
     Dosage: UNK
  29. FOLIC ACID. [Concomitant]
     Active Substance: FOLIC ACID
     Dosage: 5 MILLIGRAM, QW(5 MG, ONCE WEEKLY )
     Route: 048
     Dates: start: 20160512
  30. METHOTREXATE. [Suspect]
     Active Substance: METHOTREXATE
     Dosage: 15 MILLIGRAM, QW(15.0 MG, WEEKLY)
     Dates: start: 20060923
  31. ENBREL [Suspect]
     Active Substance: ETANERCEPT
     Dosage: 100 MILLIGRAM, QW (50 MG, TWICE A WEEK )
     Route: 058
     Dates: start: 20160602, end: 20160720
  32. METHOTREXATE. [Suspect]
     Active Substance: METHOTREXATE
     Dosage: 10 MILLIGRAM, QW (10 MG, WEEKLY)
     Route: 048
     Dates: start: 20180301, end: 20180614
  33. METHOTREXATE. [Suspect]
     Active Substance: METHOTREXATE
     Dosage: 15 MILLIGRAM, QW(15.0 MG, WEEKLY)
     Dates: start: 20060213, end: 20060530
  34. BISOPROLOL [Concomitant]
     Active Substance: BISOPROLOL
     Dosage: UNK

REACTIONS (3)
  - Basal cell carcinoma [Recovered/Resolved]
  - Clear cell renal cell carcinoma [Not Recovered/Not Resolved]
  - Drug ineffective [Recovered/Resolved]

NARRATIVE: CASE EVENT DATE: 20180117
